FAERS Safety Report 13679897 (Version 2)
Quarter: 2017Q3

REPORT INFORMATION
  Report Type: Spontaneous
  Country: FR (occurrence: FR)
  Receive Date: 20170622
  Receipt Date: 20170808
  Transmission Date: 20171127
  Serious: No
  Sender: FDA-Public Use
  Company Number: FR-009507513-1706FRA007577

PATIENT
  Sex: Female
  Weight: 60 kg

DRUGS (4)
  1. NEXPLANON [Suspect]
     Active Substance: ETONOGESTREL
     Indication: CONTRACEPTION
     Dosage: 1 DF, UNK
     Route: 058
     Dates: start: 20160923, end: 20170512
  2. SUBOXONE [Concomitant]
     Active Substance: BUPRENORPHINE HYDROCHLORIDE\NALOXONE HYDROCHLORIDE
     Indication: DRUG USE DISORDER
     Dosage: UNK
     Dates: start: 2013
  3. SUBUTEX [Concomitant]
     Active Substance: BUPRENORPHINE HYDROCHLORIDE
  4. XANAX [Concomitant]
     Active Substance: ALPRAZOLAM
     Dosage: UNK, PRN
     Dates: start: 2013

REACTIONS (11)
  - Alopecia [Unknown]
  - Depression [Unknown]
  - Pain in extremity [Unknown]
  - Asthenia [Unknown]
  - Acne [Unknown]
  - Myalgia [Unknown]
  - Paraesthesia [Unknown]
  - Hot flush [Unknown]
  - Fibromyalgia [Unknown]
  - Arthralgia [Unknown]
  - Hair growth abnormal [Unknown]
